FAERS Safety Report 6553783-9 (Version None)
Quarter: 2010Q1

REPORT INFORMATION
  Report Type: 
  Country: None (occurrence: None)
  Receive Date: 20100125
  Receipt Date: 20100111
  Transmission Date: 20100710
  Serious: Yes (Hospitalization)
  Sender: FDA-Public Use
  Company Number: A-NJ2009-31550

PATIENT
  Age: 57 Year
  Sex: Male

DRUGS (2)
  1. TRACLEER [Suspect]
     Indication: PULMONARY ARTERIAL HYPERTENSION
     Dates: start: 20091002
  2. SILDENAFIL CITRATE [Concomitant]

REACTIONS (6)
  - CHEST PAIN [None]
  - DYSPNOEA [None]
  - INJURY [None]
  - OEDEMA [None]
  - RIB FRACTURE [None]
  - WEIGHT INCREASED [None]
